FAERS Safety Report 18946710 (Version 1)
Quarter: 2021Q1

REPORT INFORMATION
  Report Type: Report from Study
  Country: US (occurrence: US)
  Receive Date: 20210226
  Receipt Date: 20210226
  Transmission Date: 20210420
  Serious: No
  Sender: FDA-Public Use
  Company Number: US-AGIOS-2102US02523

PATIENT

DRUGS (1)
  1. TIBSOVO [Suspect]
     Active Substance: IVOSIDENIB
     Indication: CHOLANGIOCARCINOMA
     Dosage: 250 MILLIGRAM, QD

REACTIONS (4)
  - Abdominal distension [Unknown]
  - Abdominal pain upper [Unknown]
  - Pain [Unknown]
  - Off label use [Unknown]
